FAERS Safety Report 16176896 (Version 1)
Quarter: 2019Q2

REPORT INFORMATION
  Report Type: Spontaneous
  Country: US (occurrence: US)
  Receive Date: 20190409
  Receipt Date: 20190409
  Transmission Date: 20190711
  Serious: Yes (Hospitalization, Congenital Anomaly, Other)
  Sender: FDA-Public Use
  Company Number: US-BTG-201900047

PATIENT
  Age: 33 Year
  Sex: Female

DRUGS (5)
  1. CROFAB [Suspect]
     Active Substance: CROTALIDAE POLYVALENT IMMUNE FAB (OVINE)
     Indication: SNAKE BITE
     Dosage: 8 VIALS
     Route: 065
  2. CROFAB [Suspect]
     Active Substance: CROTALIDAE POLYVALENT IMMUNE FAB (OVINE)
     Indication: SNAKE BITE
     Dosage: 4 VIALS
     Route: 065
  3. CROFAB [Suspect]
     Active Substance: CROTALIDAE POLYVALENT IMMUNE FAB (OVINE)
     Indication: SNAKE BITE
     Dosage: 6 VIALS
     Route: 065
  4. CROFAB [Suspect]
     Active Substance: CROTALIDAE POLYVALENT IMMUNE FAB (OVINE)
     Indication: SNAKE BITE
     Dosage: 10 VIALS
     Route: 065
  5. CROFAB [Suspect]
     Active Substance: CROTALIDAE POLYVALENT IMMUNE FAB (OVINE)
     Indication: SNAKE BITE
     Dosage: 6 VIALS
     Route: 065

REACTIONS (8)
  - Anaemia [Unknown]
  - Maternal exposure during pregnancy [Unknown]
  - Pelvic pain [Unknown]
  - Abortion spontaneous [Unknown]
  - Hypofibrinogenaemia [Recovered/Resolved]
  - Haemoglobin decreased [Recovered/Resolved]
  - Inappropriate schedule of product administration [Unknown]
  - Vaginal haemorrhage [Recovered/Resolved]
